FAERS Safety Report 6941788-5 (Version None)
Quarter: 2010Q3

REPORT INFORMATION
  Report Type: 
  Country: None (occurrence: None)
  Receive Date: 20100826
  Receipt Date: 20100817
  Transmission Date: 20110219
  Serious: Yes (Hospitalization)
  Sender: FDA-Public Use
  Company Number: US-SHIRE-ALL1-2010-04334

PATIENT
  Sex: Female
  Weight: 90.703 kg

DRUGS (9)
  1. FOSRENOL [Suspect]
     Indication: HYPERPHOSPHATAEMIA
     Dosage: 1000 MG, 3X/DAY:TID WITH MEALS
     Route: 048
     Dates: start: 20091101
  2. FOSRENOL [Suspect]
     Dosage: UNK MG, OTHER (1/2 OF 1000 MG TAB WITH SNACKS)
     Route: 048
     Dates: start: 20091101
  3. LYRICA [Concomitant]
     Indication: NEUROPATHY PERIPHERAL
     Dosage: 50 MG, 1X/DAY:QD
     Route: 048
  4. ASPIRIN [Concomitant]
     Indication: CARDIAC DISORDER
     Dosage: 325 MG, 1X/DAY:QD
     Route: 048
  5. PLAVIX [Concomitant]
     Indication: CARDIAC DISORDER
     Dosage: 75 MG, 1X/DAY:QD
     Route: 048
     Dates: start: 20090201
  6. LEVOTHYROXINE [Concomitant]
     Indication: THYROID DISORDER
     Dosage: 25 UG, 1X/DAY:QD
     Route: 048
     Dates: start: 20090701
  7. RENAL [Concomitant]
     Indication: VITAMIN SUPPLEMENTATION
     Dosage: UNK, UNKNOWN
     Route: 048
     Dates: start: 20090101
  8. STOOL SOFTENER [Concomitant]
     Indication: FAECALOMA
     Dosage: UNK, UNKNOWN
     Route: 048
     Dates: start: 20090101
  9. MIRALAX [Concomitant]
     Indication: FAECALOMA
     Dosage: UNK, UNKNOWN
     Route: 048
     Dates: start: 20090101

REACTIONS (5)
  - ADVERSE EVENT [None]
  - FALL [None]
  - PRODUCT QUALITY ISSUE [None]
  - THERAPEUTIC RESPONSE UNEXPECTED [None]
  - TRAUMATIC FRACTURE [None]
